FAERS Safety Report 4425118-9 (Version None)
Quarter: 2004Q3

REPORT INFORMATION
  Report Type: 
  Country: None (occurrence: None)
  Receive Date: 20040813
  Receipt Date: 20040804
  Transmission Date: 20050211
  Serious: Yes (Other)
  Sender: FDA-Public Use
  Company Number: PHBS2004US10382

PATIENT
  Age: 81 Year
  Sex: Female

DRUGS (2)
  1. CARTEOLOL HCL [Suspect]
  2. BRIMONIDINE TARTRATE [Suspect]

REACTIONS (9)
  - CONJUNCTIVAL FOLLICLES [None]
  - CONJUNCTIVAL SCAR [None]
  - CONJUNCTIVITIS ALLERGIC [None]
  - CORNEAL DEPOSITS [None]
  - ERYTHEMA OF EYELID [None]
  - EYE REDNESS [None]
  - GIANT PAPILLARY CONJUNCTIVITIS [None]
  - SYMBLEPHARON [None]
  - UVEITIS [None]
